FAERS Safety Report 4823640-4 (Version None)
Quarter: 2005Q4

REPORT INFORMATION
  Report Type: 
  Country: None (occurrence: None)
  Receive Date: 20051109
  Receipt Date: 20050824
  Transmission Date: 20060501
  Serious: Yes (Hospitalization)
  Sender: FDA-Public Use
  Company Number: JP-GLAXOSMITHKLINE-B0391680A

PATIENT
  Age: 59 Year
  Sex: Female
  Weight: 54 kg

DRUGS (5)
  1. AUGMENTIN '125' [Suspect]
     Indication: PNEUMONIA
     Dosage: 1TAB FOUR TIMES PER DAY
     Route: 048
     Dates: start: 20050721, end: 20050727
  2. MUCODYNE [Suspect]
     Indication: PNEUMONIA
     Dosage: 500MG THREE TIMES PER DAY
     Route: 048
     Dates: start: 20050720, end: 20050725
  3. ASVERIN [Suspect]
     Indication: PNEUMONIA
     Dosage: 20MG THREE TIMES PER DAY
     Route: 048
     Dates: start: 20050720, end: 20050725
  4. SELBEX [Suspect]
     Indication: PNEUMONIA
     Dosage: 1CAP THREE TIMES PER DAY
     Route: 048
     Dates: start: 20050721, end: 20050727
  5. NAPACETIN [Concomitant]
     Indication: DRUG USE FOR UNKNOWN INDICATION
     Route: 048

REACTIONS (7)
  - ANOREXIA [None]
  - CHROMATURIA [None]
  - HEPATIC FUNCTION ABNORMAL [None]
  - JAUNDICE [None]
  - MALAISE [None]
  - NAUSEA [None]
  - PRURITUS [None]
